FAERS Safety Report 7583117 (Version 3)
Quarter: 2014Q1

REPORT INFORMATION
  Report Type: Spontaneous
  Country: US (occurrence: US)
  Receive Date: 20100914
  Receipt Date: 20140121
  Transmission Date: 20141002
  Serious: Yes (Hospitalization, Other)
  Sender: FDA-Public Use
  Company Number: US-BAYER-201033254NA

PATIENT
  Age: 29 Year
  Sex: Female
  Weight: 77 kg

DRUGS (10)
  1. YAZ [Suspect]
     Indication: PRODUCT USED FOR UNKNOWN INDICATION
  2. ORTHO TRI-CYCLEN [Concomitant]
     Indication: ORAL CONTRACEPTION
     Route: 048
     Dates: start: 2003, end: 20040615
  3. ORTHO TRI-CYCLEN [Concomitant]
     Indication: ORAL CONTRACEPTION
     Dosage: UNK
     Route: 048
  4. VICODIN [Concomitant]
  5. BENTYL [Concomitant]
  6. LEVOXYL [Concomitant]
  7. SYNTHROID [Concomitant]
  8. IBUPROFEN [Concomitant]
  9. COMPAZINE [Concomitant]
  10. ULTRAM [Concomitant]

REACTIONS (12)
  - Cholecystitis chronic [Unknown]
  - Biliary dyskinesia [None]
  - Vomiting [Unknown]
  - Nausea [Unknown]
  - Gallbladder cholesterolosis [Unknown]
  - Epigastric discomfort [None]
  - Costovertebral angle tenderness [None]
  - Abdominal pain upper [Unknown]
  - Gallbladder cholesterolosis [None]
  - Flank pain [None]
  - Abdominal pain [Unknown]
  - Diarrhoea [Unknown]
